FAERS Safety Report 7344416-2 (Version None)
Quarter: 2011Q1

REPORT INFORMATION
  Report Type: 
  Country: None (occurrence: None)
  Receive Date: 20110310
  Receipt Date: 20110302
  Transmission Date: 20110831
  Serious: Yes (Life-Threatening, Hospitalization, Other)
  Sender: FDA-Public Use
  Company Number: PHHO2011US04226

PATIENT
  Age: 62 Year
  Sex: Male
  Weight: 89 kg

DRUGS (1)
  1. DEXAMETHASONE TABLETS USP [Suspect]
     Indication: BRAIN OEDEMA
     Dosage: 60 MG, QID
     Route: 048

REACTIONS (3)
  - NEOPLASM MALIGNANT [None]
  - HYPERGLYCAEMIA [None]
  - METASTASES TO SPINE [None]
